FAERS Safety Report 6308558-2 (Version None)
Quarter: 2009Q3

REPORT INFORMATION
  Report Type: 
  Country: None (occurrence: None)
  Receive Date: 20090813
  Receipt Date: 20090804
  Transmission Date: 20100115
  Serious: Yes (Hospitalization, Disabling)
  Sender: FDA-Public Use
  Company Number: US-ELI_LILLY_AND_COMPANY-US200605001447

PATIENT
  Sex: Female

DRUGS (9)
  1. EVISTA [Suspect]
     Indication: OSTEOPOROSIS
     Dosage: 60 MG, UNK
     Route: 065
     Dates: start: 19970101, end: 20090701
  2. SYNTHROID [Concomitant]
     Dosage: UNK, UNKNOWN
     Route: 065
  3. ZOCOR [Concomitant]
     Dosage: UNK, UNKNOWN
     Route: 065
  4. ADVAIR HFA [Concomitant]
     Dosage: UNK, UNKNOWN
     Route: 065
  5. NASONEX [Concomitant]
     Dosage: UNK, UNKNOWN
     Route: 065
  6. TEKTURNA /01763601/ [Concomitant]
     Indication: BLOOD PRESSURE
     Dosage: UNK, UNKNOWN
     Route: 065
  7. FERRO-SEQUELS [Concomitant]
     Dosage: UNK, UNKNOWN
     Route: 065
  8. ACTONEL [Concomitant]
     Dosage: UNK, UNKNOWN
     Route: 065
     Dates: start: 20090101
  9. BONIVA [Concomitant]
     Dosage: UNK, UNKNOWN
     Route: 065

REACTIONS (14)
  - ARTHRITIS [None]
  - BONE DENSITY DECREASED [None]
  - CONTUSION [None]
  - DEHYDRATION [None]
  - DRUG INEFFECTIVE [None]
  - FALL [None]
  - GASTROINTESTINAL DISORDER [None]
  - GENERAL PHYSICAL CONDITION ABNORMAL [None]
  - HYPOKALAEMIA [None]
  - JOINT DISLOCATION [None]
  - OEDEMA PERIPHERAL [None]
  - OESOPHAGEAL DISORDER [None]
  - TOOTH INJURY [None]
  - WALKING DISABILITY [None]
